FAERS Safety Report 6498391-3 (Version None)
Quarter: 2009Q4

REPORT INFORMATION
  Report Type: 
  Country: None (occurrence: None)
  Receive Date: 20091127
  Receipt Date: 20090609
  Transmission Date: 20100525
  Serious: Yes (Hospitalization)
  Sender: FDA-Public Use
  Company Number: 285396

PATIENT
  Age: 54 Year
  Sex: Male
  Weight: 149.7 kg

DRUGS (16)
  1. NOVOLOG [Suspect]
     Indication: INSULIN-REQUIRING TYPE 2 DIABETES MELLITUS
     Dosage: 20 IU, QD, SUBCUTANEOUS; 50 IU, SINGLE, SUBCUTANEOUS
     Route: 058
     Dates: start: 20090318, end: 20090318
  2. NOVOLOG [Suspect]
     Indication: INSULIN-REQUIRING TYPE 2 DIABETES MELLITUS
     Dosage: 20 IU, QD, SUBCUTANEOUS; 50 IU, SINGLE, SUBCUTANEOUS
     Route: 058
     Dates: start: 20090101
  3. LANTUS [Concomitant]
  4. MULTIVITAMIN /00097801/ (ASCORBIC ACID, CALCIUM PANTOTHENATE, ERGOCALC [Concomitant]
  5. METOPROLOL (METOPROLOL) [Concomitant]
  6. FOLIC ACID [Concomitant]
  7. FLOMAX (MORNIFLUMATE) [Concomitant]
  8. ABILIFY [Concomitant]
  9. SEROQUEL [Concomitant]
  10. TEMAZEPAM [Concomitant]
  11. LISINOPRIL [Concomitant]
  12. METFORMIN HCL [Concomitant]
  13. INSULIN (INSULIN) [Concomitant]
  14. ASPIRIN [Concomitant]
  15. NAPROXIN [Concomitant]
  16. DOXEPIN HCL [Concomitant]

REACTIONS (3)
  - HYPOGLYCAEMIA [None]
  - HYPOTENSION [None]
  - INCORRECT DOSE ADMINISTERED [None]
